FAERS Safety Report 8342648-8 (Version None)
Quarter: 2012Q2

REPORT INFORMATION
  Report Type: 
  Country: None (occurrence: None)
  Receive Date: 20120508
  Receipt Date: 20090518
  Transmission Date: 20120825
  Serious: No
  Sender: FDA-Public Use
  Company Number: 2009BI015178

PATIENT
  Age: 61 Year
  Sex: Female

DRUGS (1)
  1. TYSABRI [Suspect]
     Indication: MULTIPLE SCLEROSIS
     Route: 042
     Dates: start: 20090211, end: 20090513

REACTIONS (8)
  - PARAESTHESIA [None]
  - FALL [None]
  - DRUG INEFFECTIVE [None]
  - GENERAL SYMPTOM [None]
  - FATIGUE [None]
  - CONTUSION [None]
  - DRUG EFFECT DECREASED [None]
  - MUSCULOSKELETAL STIFFNESS [None]
